FAERS Safety Report 4551732-6 (Version None)
Quarter: 2005Q1

REPORT INFORMATION
  Report Type: 
  Country: None (occurrence: None)
  Receive Date: 20050110
  Receipt Date: 20041228
  Transmission Date: 20050727
  Serious: Yes (Death, Hospitalization)
  Sender: FDA-Public Use
  Company Number: DSA_25169_2004

PATIENT
  Sex: Female

DRUGS (8)
  1. TEVETEN [Suspect]
     Indication: HYPERTENSION
     Dosage: 600 MG Q DAY PO
     Route: 048
     Dates: end: 20040701
  2. ASPIRIN [Concomitant]
  3. TENORMIN [Concomitant]
  4. LIPITOR [Concomitant]
  5. NORVASC [Concomitant]
  6. DIDROCAL [Concomitant]
  7. ATENOLOL [Concomitant]
  8. PANTOLOC ^BYK GULDEN^ [Concomitant]

REACTIONS (1)
  - CEREBROVASCULAR ACCIDENT [None]
